FAERS Safety Report 4316939-1 (Version None)
Quarter: 2004Q1

REPORT INFORMATION
  Report Type: 
  Country: None (occurrence: None)
  Receive Date: 20040312
  Receipt Date: 20040301
  Transmission Date: 20041129
  Serious: Yes (Hospitalization)
  Sender: FDA-Public Use
  Company Number: US-JNJFOC-20040300700

PATIENT
  Age: 36 Year
  Sex: Male

DRUGS (11)
  1. INFLIXIMAB, RECOMBINANT - BLINDED (INFLIXIMAB, RECOMBINANT) LYOPHILIZE [Suspect]
     Indication: COLITIS ULCERATIVE
     Dosage: INTRAVENOUS
     Route: 042
     Dates: start: 20031103
  2. INFLIXIMAB, RECOMBINANT - BLINDED (INFLIXIMAB, RECOMBINANT) LYOPHILIZE [Suspect]
     Indication: COLITIS ULCERATIVE
     Dosage: INTRAVENOUS
     Route: 042
     Dates: start: 20031117
  3. INFLIXIMAB, RECOMBINANT - BLINDED (INFLIXIMAB, RECOMBINANT) LYOPHILIZE [Suspect]
     Indication: COLITIS ULCERATIVE
     Dosage: INTRAVENOUS
     Route: 042
     Dates: start: 20031215
  4. PLACEBO (PLACEBO) [Suspect]
     Indication: COLITIS ULCERATIVE
     Dates: start: 20031103
  5. PLACEBO (PLACEBO) [Suspect]
     Indication: COLITIS ULCERATIVE
     Dates: start: 20031117
  6. PLACEBO (PLACEBO) [Suspect]
     Indication: COLITIS ULCERATIVE
     Dates: start: 20031215
  7. IMURAN [Concomitant]
  8. CODEINE (CODEINE) [Concomitant]
  9. BUDESONIDE (BUDESONIDE) [Concomitant]
  10. ROWASA ENEMA (ENEMAS) [Concomitant]
  11. .. [Suspect]

REACTIONS (2)
  - NAUSEA [None]
  - VOMITING [None]
